FAERS Safety Report 5113612-7 (Version None)
Quarter: 2006Q3

REPORT INFORMATION
  Report Type: 
  Country: None (occurrence: None)
  Receive Date: 20060920
  Receipt Date: 20060902
  Transmission Date: 20061208
  Serious: Yes (Other)
  Sender: FDA-Public Use
  Company Number: SY200609000387

PATIENT
  Age: 53 Year
  Sex: Female

DRUGS (2)
  1. RALOXIFENE HYDROCHLORID [Suspect]
     Indication: OSTEOPOROSIS
     Dates: start: 20060826, end: 20060830
  2. BETA BLOCKING AGENTS [Concomitant]

REACTIONS (3)
  - ERYTHEMA [None]
  - PAIN OF SKIN [None]
  - SKIN DISORDER [None]
